FAERS Safety Report 5312217-2 (Version None)
Quarter: 2007Q2

REPORT INFORMATION
  Report Type: 
  Country: None (occurrence: None)
  Receive Date: 20070430
  Receipt Date: 20060808
  Transmission Date: 20071010
  Serious: No
  Sender: FDA-Public Use
  Company Number: 2006UW15830

PATIENT
  Age: 91 Year
  Sex: Male
  Weight: 72.6 kg

DRUGS (2)
  1. NEXIUM [Suspect]
     Indication: HYPERCHLORHYDRIA
     Route: 048
     Dates: start: 20060701
  2. MAALOX FAST BLOCKER [Suspect]
     Dates: end: 20060801

REACTIONS (1)
  - FAECES DISCOLOURED [None]
